FAERS Safety Report 5947389-X (Version None)
Quarter: 2008Q4

REPORT INFORMATION
  Report Type: 
  Country: None (occurrence: None)
  Receive Date: 20081110
  Receipt Date: 20081029
  Transmission Date: 20090506
  Serious: Yes (Death)
  Sender: FDA-Public Use
  Company Number: PH-PFIZER INC-2008091824

PATIENT
  Age: 31 Year
  Sex: Male

DRUGS (1)
  1. ZITHROMAX [Suspect]
     Indication: COUGH
     Dosage: DAILY DOSE:500MG

REACTIONS (1)
  - CARDIAC ARREST [None]
